FAERS Safety Report 22526945 (Version 1)
Quarter: 2023Q2

REPORT INFORMATION
  Report Type: Spontaneous
  Country: LT (occurrence: LT)
  Receive Date: 20230606
  Receipt Date: 20230606
  Transmission Date: 20230722
  Serious: Yes (Other)
  Sender: FDA-Public Use
  Company Number: LT-BAYER-2023A074376

PATIENT
  Age: 60 Year
  Sex: Female

DRUGS (3)
  1. STIVARGA [Suspect]
     Active Substance: REGORAFENIB
     Dosage: 160 MG DAILY
     Dates: start: 20220419
  2. STIVARGA [Suspect]
     Active Substance: REGORAFENIB
     Dosage: 120 MG
  3. STIVARGA [Suspect]
     Active Substance: REGORAFENIB
     Dosage: UNK

REACTIONS (7)
  - Disease progression [None]
  - Rash maculo-papular [None]
  - Asthenia [None]
  - Dyspnoea [None]
  - Hypertension [None]
  - Palmar-plantar erythrodysaesthesia syndrome [None]
  - General physical health deterioration [None]
